FAERS Safety Report 18952695 (Version 1)
Quarter: 2021Q1

REPORT INFORMATION
  Report Type: Spontaneous
  Country: JP (occurrence: JP)
  Receive Date: 20210301
  Receipt Date: 20210301
  Transmission Date: 20210420
  Serious: Yes (Hospitalization, Other)
  Sender: FDA-Public Use
  Company Number: JP-RNT-000011

PATIENT
  Age: 94 Year
  Sex: Female

DRUGS (1)
  1. RISPERIDONE. [Suspect]
     Active Substance: RISPERIDONE
     Indication: DEMENTIA
     Route: 065

REACTIONS (10)
  - Product use in unapproved indication [Unknown]
  - Klebsiella infection [Recovered/Resolved]
  - Sepsis [Recovered/Resolved]
  - Pyrexia [Recovered/Resolved]
  - Pyuria [Recovered/Resolved]
  - Hypoglycaemia [Recovered/Resolved]
  - Heart rate increased [Recovered/Resolved]
  - Abdominal tenderness [Recovered/Resolved]
  - Hypotension [Recovered/Resolved]
  - Pyelonephritis [Recovered/Resolved]
